FAERS Safety Report 25244334 (Version 2)
Quarter: 2025Q3

REPORT INFORMATION
  Report Type: Spontaneous
  Country: GB (occurrence: GB)
  Receive Date: 20250428
  Receipt Date: 20250922
  Transmission Date: 20251021
  Serious: Yes (Disabling, Other)
  Sender: CIPLA
  Company Number: GB-MHRA-MED-202504150002205880-PZLMN

PATIENT

DRUGS (1)
  1. CETIRIZINE [Suspect]
     Active Substance: CETIRIZINE HYDROCHLORIDE
     Indication: Product used for unknown indication
     Route: 065

REACTIONS (6)
  - Irritability [Not Recovered/Not Resolved]
  - Paranoia [Recovering/Resolving]
  - Psychotic disorder [Recovered/Resolved]
  - Muscular weakness [Recovering/Resolving]
  - Hypoglycaemia [Recovering/Resolving]
  - Suicidal ideation [Recovered/Resolved]
